FAERS Safety Report 23795838 (Version 3)
Quarter: 2024Q2

REPORT INFORMATION
  Report Type: Spontaneous
  Country: US (occurrence: US)
  Receive Date: 20240429
  Receipt Date: 20240530
  Transmission Date: 20240716
  Serious: No
  Sender: FDA-Public Use
  Company Number: US-BIOGEN-2024BI01261793

PATIENT
  Sex: Female

DRUGS (14)
  1. VUMERITY [Suspect]
     Active Substance: DIROXIMEL FUMARATE
     Indication: Multiple sclerosis
     Route: 050
     Dates: start: 20210428
  2. VUMERITY [Suspect]
     Active Substance: DIROXIMEL FUMARATE
     Route: 050
  3. BACLOFEN [Concomitant]
     Active Substance: BACLOFEN
     Route: 050
  4. GABAPENTIN [Concomitant]
     Active Substance: GABAPENTIN
     Route: 050
  5. PRAVASTATIN SODIUM [Concomitant]
     Active Substance: PRAVASTATIN SODIUM
     Route: 050
  6. DIAZEPAM [Concomitant]
     Active Substance: DIAZEPAM
     Route: 050
  7. FOLIC ACID [Concomitant]
     Active Substance: FOLIC ACID
     Route: 050
  8. TRAZODONE HYDROCHLORIDE [Concomitant]
     Active Substance: TRAZODONE HYDROCHLORIDE
     Route: 050
  9. VITAMIN D [Concomitant]
     Active Substance: VITAMIN D NOS
     Route: 050
  10. VITAMIN B12 [Concomitant]
     Active Substance: CYANOCOBALAMIN
     Route: 050
  11. DILANTIN [Concomitant]
     Active Substance: PHENYTOIN
     Route: 050
  12. IBUPROFEN [Concomitant]
     Active Substance: IBUPROFEN
     Route: 050
  13. OXYCODONE HYDROCHLORIDE [Concomitant]
     Active Substance: OXYCODONE HYDROCHLORIDE
     Route: 050
  14. OMEGA 3 [Concomitant]
     Active Substance: CAPSAICIN
     Route: 050

REACTIONS (1)
  - White blood cell count decreased [Not Recovered/Not Resolved]
